FAERS Safety Report 20299260 (Version 1)
Quarter: 2022Q1

REPORT INFORMATION
  Report Type: Spontaneous
  Country: US (occurrence: None)
  Receive Date: 20220104
  Receipt Date: 20220104
  Transmission Date: 20220423
  Serious: Yes (Other)
  Sender: FDA-Public Use
  Company Number: None

PATIENT
  Age: 70 Year
  Sex: Female
  Weight: 65.1 kg

DRUGS (6)
  1. HEPARIN SODIUM [Suspect]
     Active Substance: HEPARIN SODIUM
     Indication: Thrombosis prophylaxis
     Dosage: FREQUENCY : 3 TIMES A DAY;?
     Route: 058
     Dates: start: 20211228, end: 20211229
  2. ASPIRIN [Concomitant]
     Active Substance: ASPIRIN
  3. PLAVIX [Concomitant]
     Active Substance: CLOPIDOGREL BISULFATE
  4. WELLBUTRIN [Concomitant]
     Active Substance: BUPROPION HYDROCHLORIDE
  5. PROZAC [Concomitant]
     Active Substance: FLUOXETINE HYDROCHLORIDE
  6. DIAZEPAM [Concomitant]
     Active Substance: DIAZEPAM

REACTIONS (1)
  - Injection site haematoma [None]

NARRATIVE: CASE EVENT DATE: 20211229
